FAERS Safety Report 24155548 (Version 1)
Quarter: 2024Q3

REPORT INFORMATION
  Report Type: Spontaneous
  Country: JP (occurrence: JP)
  Receive Date: 20240731
  Receipt Date: 20240731
  Transmission Date: 20241016
  Serious: Yes (Hospitalization)
  Sender: BRISTOL MYERS SQUIBB
  Company Number: JP-BRISTOL-MYERS SQUIBB COMPANY-2024-096028

PATIENT
  Age: 75 Year
  Sex: Male

DRUGS (4)
  1. ORENCIA [Suspect]
     Active Substance: ABATACEPT
     Indication: Rheumatoid arthritis
     Route: 058
     Dates: start: 20240319
  2. ETODOLAC [Concomitant]
     Active Substance: ETODOLAC
     Indication: Analgesic therapy
     Dosage: 2 TABLETS /DAY
     Dates: start: 20240209
  3. GASLON [Concomitant]
     Active Substance: IRSOGLADINE MALEATE
     Indication: Abdominal discomfort
     Dosage: 2 TABLETS /DAY
     Dates: start: 20240209
  4. AZULFIDINE [Concomitant]
     Active Substance: SULFASALAZINE
     Indication: Rheumatic disorder
     Dosage: 2 TABLETS /DAY
     Dates: start: 20240209

REACTIONS (1)
  - Rotator cuff syndrome [Unknown]

NARRATIVE: CASE EVENT DATE: 20240516
